FAERS Safety Report 10234534 (Version 1)
Quarter: 2014Q2

REPORT INFORMATION
  Report Type: Report from Study
  Country: FR (occurrence: FR)
  Receive Date: 20140613
  Receipt Date: 20140613
  Transmission Date: 20141212
  Serious: Yes (Other)
  Sender: FDA-Public Use
  Company Number: FR-AMGEN INC.-FRACT2014043017

PATIENT
  Age: 70 Year
  Sex: Female

DRUGS (4)
  1. PANITUMUMAB [Suspect]
     Indication: GASTROOESOPHAGEAL CANCER
     Dosage: 430 MG, UNK
     Route: 042
     Dates: start: 20121114
  2. FLUOROURACIL [Concomitant]
     Indication: GASTROOESOPHAGEAL CANCER
     Dosage: 700 MG, UNK
     Route: 042
     Dates: start: 20121114
  3. LEVOFOLINATE CALCIUM [Concomitant]
     Indication: GASTROOESOPHAGEAL CANCER
     Dosage: 350 MG, UNK
     Route: 042
     Dates: start: 20121114
  4. OXALIPLATIN [Concomitant]
     Dosage: 150 MG, UNK
     Route: 042
     Dates: start: 20121114

REACTIONS (1)
  - White blood cell count abnormal [Recovered/Resolved]
